FAERS Safety Report 4727461-2 (Version None)
Quarter: 2005Q3

REPORT INFORMATION
  Report Type: 
  Country: None (occurrence: None)
  Receive Date: 20050725
  Receipt Date: 20050725
  Transmission Date: 20060218
  Serious: Yes (Death, Life-Threatening, Hospitalization)
  Sender: FDA-Public Use
  Company Number: None

PATIENT
  Age: 40 Year
  Sex: Male

DRUGS (1)
  1. CLOFARABINE [Suspect]
     Indication: ACUTE MYELOID LEUKAEMIA
     Dosage: 77 MG   DAILY  INTRAVENOU
     Route: 042
     Dates: start: 20050617, end: 20050622

REACTIONS (8)
  - ANAEMIA [None]
  - DYSPNOEA [None]
  - FATIGUE [None]
  - HYPOTENSION [None]
  - NEUTROPENIA [None]
  - RENAL FAILURE ACUTE [None]
  - TACHYCARDIA [None]
  - THROMBOCYTOPENIA [None]
